FAERS Safety Report 18706207 (Version 5)
Quarter: 2021Q2

REPORT INFORMATION
  Report Type: Spontaneous
  Country: US (occurrence: US)
  Receive Date: 20210106
  Receipt Date: 20210519
  Transmission Date: 20210717
  Serious: No
  Sender: FDA-Public Use
  Company Number: US-TEVA-2020-US-1861711

PATIENT
  Age: 89 Year
  Sex: Female

DRUGS (4)
  1. AUSTEDO [Suspect]
     Active Substance: DEUTETRABENAZINE
     Dosage: 18 MILLIGRAM DAILY; TITRATING PATIENT?INITIAL
     Route: 065
  2. AUSTEDO [Suspect]
     Active Substance: DEUTETRABENAZINE
     Dosage: 30 MILLIGRAM DAILY; CURRENT DOSE ( 9 MG+ 6 MG)
     Route: 065
  3. AUSTEDO [Suspect]
     Active Substance: DEUTETRABENAZINE
     Route: 065
     Dates: end: 20210401
  4. AUSTEDO [Suspect]
     Active Substance: DEUTETRABENAZINE
     Indication: MOVEMENT DISORDER
     Dosage: 12 MILLIGRAM DAILY; TITRATING PATIENT?INITIAL
     Route: 065
     Dates: start: 20201028

REACTIONS (11)
  - Drug ineffective [Unknown]
  - Gait disturbance [Unknown]
  - Hypersomnia [Unknown]
  - Dandruff [Unknown]
  - Lung disorder [Unknown]
  - Walking aid user [Unknown]
  - Hypertension [Unknown]
  - Product use in unapproved indication [Unknown]
  - Fatigue [Unknown]
  - Somnolence [Unknown]
  - Balance disorder [Unknown]

NARRATIVE: CASE EVENT DATE: 20201028
